FAERS Safety Report 25948880 (Version 1)
Quarter: 2025Q4

REPORT INFORMATION
  Report Type: Spontaneous
  Country: US (occurrence: US)
  Receive Date: 20251022
  Receipt Date: 20251022
  Transmission Date: 20260118
  Serious: No
  Sender: BAUSCH AND LOMB
  Company Number: US-BAUSCHBL-2025BNL030077

PATIENT
  Sex: Female

DRUGS (1)
  1. LUMIFY PRESERVATIVE FREE EYE DROPS [Suspect]
     Active Substance: BRIMONIDINE TARTRATE
     Indication: Ocular hyperaemia
     Route: 047

REACTIONS (6)
  - Eyelid pain [Unknown]
  - Headache [Unknown]
  - Eye pain [Unknown]
  - Condition aggravated [Unknown]
  - Drug ineffective [Unknown]
  - Product container issue [Unknown]
